FAERS Safety Report 23391689 (Version 3)
Quarter: 2024Q1

REPORT INFORMATION
  Report Type: Spontaneous
  Country: US (occurrence: US)
  Receive Date: 20240111
  Receipt Date: 20240130
  Transmission Date: 20240409
  Serious: No
  Sender: FDA-Public Use
  Company Number: US-SANDOZ-SDZ2024US002388

PATIENT
  Sex: Female

DRUGS (6)
  1. DICLOFENAC [Suspect]
     Active Substance: DICLOFENAC
     Indication: Psoriasis
     Dosage: UNK UNK, QD (UNK UNK, BID)
     Route: 065
  2. FAMOTIDINE [Concomitant]
     Active Substance: FAMOTIDINE
     Indication: Product used for unknown indication
     Dosage: 40 MG, QD (1 TABLET)
     Route: 048
  3. GLUCOSAMINE PLUS CHONDROITIN [Concomitant]
     Indication: Product used for unknown indication
     Dosage: UNK
     Route: 048
  4. MELATONIN [Concomitant]
     Active Substance: MELATONIN
     Indication: Product used for unknown indication
     Dosage: 3 MG (1TAB ORALLY 2-3X WEEKLY)
     Route: 048
  5. TRIAMTERENE [Concomitant]
     Active Substance: TRIAMTERENE
     Indication: Product used for unknown indication
     Dosage: 1 DF, QD (37.5-25 MG TABLET 1TAB , QD)
     Route: 048
  6. TIZANIDINE HYDROCHLORIDE [Concomitant]
     Active Substance: TIZANIDINE HYDROCHLORIDE
     Indication: Product used for unknown indication
     Dosage: 4 MG, QD (1 TABLET BY MOUTH EVERY DAY AT BEDTIME AS NEEDED)
     Route: 048

REACTIONS (3)
  - Laboratory test abnormal [Unknown]
  - Back pain [Unknown]
  - Musculoskeletal stiffness [Unknown]
